FAERS Safety Report 8611479-3 (Version None)
Quarter: 2012Q3

REPORT INFORMATION
  Report Type: 
  Country: None (occurrence: None)
  Receive Date: 20120822
  Receipt Date: 20120816
  Transmission Date: 20120928
  Serious: Yes (Other)
  Sender: FDA-Public Use
  Company Number: BR-PFIZER INC-2012194330

PATIENT
  Age: 33 Year
  Sex: Female
  Weight: 67 kg

DRUGS (1)
  1. ADVIL [Suspect]
     Indication: HEADACHE
     Dosage: 400 MG, 1X/DAY
     Route: 048
     Dates: start: 20120808, end: 20120808

REACTIONS (6)
  - DRUG HYPERSENSITIVITY [None]
  - LARYNGEAL OEDEMA [None]
  - PRURITUS [None]
  - LIP SWELLING [None]
  - EYELID OEDEMA [None]
  - RESPIRATORY TRACT CONGESTION [None]
